FAERS Safety Report 10922304 (Version 3)
Quarter: 2015Q2

REPORT INFORMATION
  Report Type: Report from Study
  Country: BE (occurrence: BE)
  Receive Date: 20150317
  Receipt Date: 20150612
  Transmission Date: 20150821
  Serious: Yes (Other)
  Sender: FDA-Public Use
  Company Number: PHHY2015BE026922

PATIENT
  Age: 52 Year
  Sex: Female

DRUGS (6)
  1. ZYKADIA [Suspect]
     Active Substance: CERITINIB
     Dosage: 600 MG, UNK
     Route: 048
     Dates: start: 20150313
  2. PANTOMED//PANTOPRAZOLE SODIUM SESQUIHYDRATE [Concomitant]
     Indication: PRODUCT USED FOR UNKNOWN INDICATION
     Dosage: UNK
     Route: 065
     Dates: start: 20141201, end: 201501
  3. ZYKADIA [Suspect]
     Active Substance: CERITINIB
     Indication: NON-SMALL CELL LUNG CANCER
     Dosage: 750 MG, UNK
     Route: 048
     Dates: start: 20150205
  4. DEXAMETHASONE. [Concomitant]
     Active Substance: DEXAMETHASONE
     Indication: PRODUCT USED FOR UNKNOWN INDICATION
  5. INNOHEP [Concomitant]
     Active Substance: TINZAPARIN SODIUM
     Indication: PRODUCT USED FOR UNKNOWN INDICATION
     Dosage: UNK
     Route: 065
     Dates: start: 201407
  6. DEXAMETHASONE. [Concomitant]
     Active Substance: DEXAMETHASONE
     Indication: PRODUCT USED FOR UNKNOWN INDICATION
     Dosage: 4 MG, UNK
     Route: 065
     Dates: start: 20141230, end: 201502

REACTIONS (8)
  - Renal failure [Recovering/Resolving]
  - Diarrhoea [Not Recovered/Not Resolved]
  - Eczema [Recovered/Resolved]
  - Hypercalcaemia [Not Recovered/Not Resolved]
  - Asthenia [Not Recovered/Not Resolved]
  - Hypophosphataemia [Recovered/Resolved]
  - Nausea [Not Recovered/Not Resolved]
  - Hyperparathyroidism primary [Not Recovered/Not Resolved]

NARRATIVE: CASE EVENT DATE: 201502
